FAERS Safety Report 4858694-2 (Version None)
Quarter: 2005Q4

REPORT INFORMATION
  Report Type: 
  Country: None (occurrence: None)
  Receive Date: 20051219
  Receipt Date: 20051019
  Transmission Date: 20060501
  Serious: No
  Sender: FDA-Public Use
  Company Number: US-GLAXOSMITHKLINE-A0578843A

PATIENT
  Age: 75 Year
  Sex: Male

DRUGS (5)
  1. NICODERM CQ [Suspect]
     Dates: start: 20050825, end: 20051016
  2. OXYCONTIN [Concomitant]
  3. ANTIBIOTICS [Concomitant]
  4. TYLENOL (CAPLET) [Concomitant]
  5. PAINKILLER [Concomitant]

REACTIONS (1)
  - DYSGEUSIA [None]
